FAERS Safety Report 8470363-9 (Version None)
Quarter: 2012Q2

REPORT INFORMATION
  Report Type: 
  Country: None (occurrence: None)
  Receive Date: 20120323
  Receipt Date: 20111007
  Transmission Date: 20120825
  Serious: Yes (Hospitalization)
  Sender: FDA-Public Use
  Company Number: 163-21880-11101241

PATIENT
  Age: 58 Year
  Sex: Male

DRUGS (2)
  1. REVLIMID [Suspect]
     Indication: MULTIPLE MYELOMA
     Dosage: 25 MG, 1 IN 1 D, PO 10 MG, DAILY X 21 DAYS ON THEN 7 DAYS OFF, REPE, PO
     Route: 048
     Dates: start: 20100525
  2. REVLIMID [Suspect]
     Indication: MULTIPLE MYELOMA
     Dosage: 25 MG, 1 IN 1 D, PO 10 MG, DAILY X 21 DAYS ON THEN 7 DAYS OFF, REPE, PO
     Route: 048
     Dates: start: 20090922, end: 20100114

REACTIONS (1)
  - THROMBOSIS [None]
